FAERS Safety Report 5568926-3 (Version None)
Quarter: 2007Q4

REPORT INFORMATION
  Report Type: 
  Country: None (occurrence: None)
  Receive Date: 20071220
  Receipt Date: 20070323
  Transmission Date: 20080405
  Serious: No
  Sender: FDA-Public Use
  Company Number: A0644347A

PATIENT
  Sex: Male

DRUGS (7)
  1. AVODART [Suspect]
     Dosage: 5MG PER DAY
     Route: 048
     Dates: start: 20060301
  2. VITAMINS [Concomitant]
  3. PLAVIX [Concomitant]
  4. ATENOLOL [Concomitant]
  5. SAW PALMETTO [Concomitant]
  6. ASPIRIN [Concomitant]
  7. UNKNOWN MEDICATION [Concomitant]

REACTIONS (2)
  - POLLAKIURIA [None]
  - URINE ODOUR ABNORMAL [None]
